FAERS Safety Report 13868552 (Version 2)
Quarter: 2017Q3

REPORT INFORMATION
  Report Type: Spontaneous
  Country: TW (occurrence: TW)
  Receive Date: 20170815
  Receipt Date: 20170901
  Transmission Date: 20171127
  Serious: Yes (Hospitalization, Other)
  Sender: FDA-Public Use
  Company Number: TW-BRISTOL-MYERS SQUIBB COMPANY-BMS-2017-072473

PATIENT
  Age: 67 Year
  Sex: Male
  Weight: 55 kg

DRUGS (2)
  1. NIVOLUMAB [Suspect]
     Active Substance: NIVOLUMAB
     Indication: HEPATOCELLULAR CARCINOMA
     Dosage: 3 MG/KG, Q2WK
     Route: 042
     Dates: start: 20170627
  2. NIVOLUMAB [Suspect]
     Active Substance: NIVOLUMAB
     Indication: PRODUCT USED FOR UNKNOWN INDICATION
     Dosage: 3 UNK, UNK
     Route: 042
     Dates: start: 20170817

REACTIONS (4)
  - Hepatic encephalopathy [Unknown]
  - Oedema peripheral [Unknown]
  - Off label use [Unknown]
  - Ascites [Unknown]

NARRATIVE: CASE EVENT DATE: 20170805
